FAERS Safety Report 21438812 (Version 1)
Quarter: 2022Q4

REPORT INFORMATION
  Report Type: Spontaneous
  Country: US (occurrence: None)
  Receive Date: 20221007
  Receipt Date: 20221007
  Transmission Date: 20230112
  Serious: Yes (Life-Threatening, Hospitalization)
  Sender: FDA-Public Use
  Company Number: None

PATIENT
  Age: 80 Year
  Sex: Female
  Weight: 68.4 kg

DRUGS (10)
  1. BEBTELOVIMAB [Suspect]
     Active Substance: BEBTELOVIMAB
     Indication: COVID-19
     Dosage: FREQUENCY : ONCE;?
     Route: 042
     Dates: start: 20221006, end: 20221006
  2. AMIODARONE [Concomitant]
     Active Substance: AMIODARONE
  3. CARVEDILOL [Concomitant]
     Active Substance: CARVEDILOL
  4. FUROSEMIDE [Concomitant]
     Active Substance: FUROSEMIDE
  5. LEVOTHYROXINE [Concomitant]
     Active Substance: LEVOTHYROXINE
  6. LOSARTAN [Concomitant]
     Active Substance: LOSARTAN
  7. RIVAROXABAN [Concomitant]
     Active Substance: RIVAROXABAN
  8. VITAMIN D [Concomitant]
     Active Substance: VITAMIN D NOS
  9. ALBUTEROL [Concomitant]
     Active Substance: ALBUTEROL
  10. ondandsetron [Concomitant]

REACTIONS (4)
  - Unresponsive to stimuli [None]
  - Respiratory arrest [None]
  - Cerebral haemorrhage [None]
  - Pupil fixed [None]

NARRATIVE: CASE EVENT DATE: 20221007
